FAERS Safety Report 8560143-8 (Version None)
Quarter: 2012Q3

REPORT INFORMATION
  Report Type: 
  Country: None (occurrence: None)
  Receive Date: 20120802
  Receipt Date: 20120724
  Transmission Date: 20120928
  Serious: Yes (Death, Hospitalization, Other)
  Sender: FDA-Public Use
  Company Number: JP-SANOFI-AVENTIS-2012SA053782

PATIENT
  Age: 80 Year
  Sex: Male

DRUGS (3)
  1. THERAPEUTIC RADIOPHARMACEUTICALS [Concomitant]
     Dosage: DOSE: 30 GY EACH TO LUMBAR VERTEBRA AND DORSAL VERTEBRA.
     Dates: start: 20110621, end: 20110721
  2. TAXOTERE [Suspect]
     Indication: PROSTATE CANCER
     Route: 042
     Dates: start: 20110624, end: 20110729
  3. DECADRON [Concomitant]
     Indication: PROSTATE CANCER
     Dates: start: 20110624

REACTIONS (3)
  - FEBRILE NEUTROPENIA [None]
  - DISSEMINATED INTRAVASCULAR COAGULATION [None]
  - STAPHYLOCOCCAL INFECTION [None]
